FAERS Safety Report 5903327-7 (Version None)
Quarter: 2008Q3

REPORT INFORMATION
  Report Type: 
  Country: None (occurrence: None)
  Receive Date: 20080926
  Receipt Date: 20080912
  Transmission Date: 20090109
  Serious: Yes (Other)
  Sender: FDA-Public Use
  Company Number: DSA_32456_2008

PATIENT
  Sex: Female

DRUGS (9)
  1. DILTIAZEM HCL [Suspect]
     Indication: DRUG USE FOR UNKNOWN INDICATION
     Dosage: 180 MG, QD
  2. DILANTIN [Suspect]
     Indication: CONVULSION
     Dosage: 100 MG TID, 1 IN AM, 2 AT NIGHT, ORAL
     Route: 048
     Dates: start: 19790101, end: 20070101
  3. PHENYTOIN SODIUM [Suspect]
     Indication: CONVULSION
     Dosage: 2 DF, BID
     Dates: start: 20070101
  4. ANTIBIOTICS [Suspect]
     Indication: DRUG USE FOR UNKNOWN INDICATION
     Dosage: DF
  5. PHENOBARBITAL [Concomitant]
  6. MORPHINE SULFATE INJ [Concomitant]
  7. FOSAMAX [Concomitant]
  8. UNSPECIFIED THERAPY [Concomitant]
  9. UNSPECIFIED THERAPY [Concomitant]

REACTIONS (8)
  - ABDOMINAL PAIN UPPER [None]
  - ANTICONVULSANT DRUG LEVEL BELOW THERAPEUTIC [None]
  - BALANCE DISORDER [None]
  - CONVULSION [None]
  - DEHYDRATION [None]
  - DIZZINESS [None]
  - MALAISE [None]
  - TREMOR [None]
